FAERS Safety Report 9908204 (Version 1)
Quarter: 2013Q2

REPORT INFORMATION
  Report Type: Spontaneous
  Country: US (occurrence: None)
  Receive Date: 20130305
  Receipt Date: 20130305
  Transmission Date: 20140414
  Serious: Yes (Other)
  Sender: FDA-Public Use
  Company Number: 163-21880-12123131

PATIENT
  Age: 75 Year
  Sex: Male

DRUGS (14)
  1. REVLIMID (LENALIDOMIDE) (25 MILLIGRAM CAPSULES) [Suspect]
     Indication: PLASMA CELL MYELOMA
     Route: 048
     Dates: start: 201009
  2. DEXAMETHASONE (DEXAMETHASONE) [Concomitant]
  3. LIPITOR (ATORVASTATIN) [Concomitant]
  4. DOXAZOSIN MESYLATE (DOXAZOSIN MESILATE) [Concomitant]
  5. LEVEMIR (INSULIN DETEMIR) [Concomitant]
  6. NOVOLOG (INSULIN ASPART) [Concomitant]
  7. AVODART (DUTASTERIDE) [Concomitant]
  8. FERROUS SULFATE (FERROUS SULFATE) [Concomitant]
  9. FOLIC ACID (FOLIC ACID) [Concomitant]
  10. METOPROLOL TARTRATE (METOPROLOL TARTRATE) [Concomitant]
  11. MULTI-VITE (MULTIVITAMINS) [Concomitant]
  12. VITAMIN D-3 (COLECALCIFEROL) [Concomitant]
  13. ASPIRIN EC (ACETYLSALICYLIC ACID) [Concomitant]
  14. ENOXAPARIN (ENOXAPARIN) [Concomitant]

REACTIONS (1)
  - Adverse drug reaction [None]
